FAERS Safety Report 19131430 (Version 3)
Quarter: 2021Q3

REPORT INFORMATION
  Report Type: Spontaneous
  Country: DE (occurrence: DE)
  Receive Date: 20210413
  Receipt Date: 20210706
  Transmission Date: 20211014
  Serious: Yes (Death, Life-Threatening, Hospitalization, Other)
  Sender: FDA-Public Use
  Company Number: DE-PFIZER INC-2021363699

PATIENT
  Age: 55 Year
  Sex: Female
  Weight: 70 kg

DRUGS (7)
  1. LINEZOLID. [Suspect]
     Active Substance: LINEZOLID
     Indication: ENTEROCOCCAL INFECTION
  2. LINEZOLID. [Suspect]
     Active Substance: LINEZOLID
     Indication: WOUND INFECTION BACTERIAL
  3. CLINDAMYCIN. [Concomitant]
     Active Substance: CLINDAMYCIN
     Indication: STAPHYLOCOCCAL BACTERAEMIA
     Dosage: 900 MG, 3X/DAY, FREQ:8 H; 1?1?1
     Dates: start: 20210122, end: 20210128
  4. MEROPENEM. [Concomitant]
     Active Substance: MEROPENEM
     Indication: DECUBITUS ULCER
     Dosage: UNK
     Dates: start: 20210309, end: 20210310
  5. MEROPENEM. [Concomitant]
     Active Substance: MEROPENEM
     Indication: NECROTISING FASCIITIS
     Dosage: 0.5 G, 3X/DAY
     Dates: start: 20201210, end: 20201220
  6. LINEZOLID. [Suspect]
     Active Substance: LINEZOLID
     Indication: OSTEOMYELITIS
     Dosage: 600 MG, 2X/DAY, (FREQ:12 H; 1?0?1)
     Route: 048
     Dates: start: 20210128, end: 20210309
  7. LINEZOLID. [Suspect]
     Active Substance: LINEZOLID
     Indication: ENTEROCOCCAL INFECTION

REACTIONS (10)
  - Respiratory failure [Fatal]
  - Multiple organ dysfunction syndrome [Fatal]
  - Metabolic acidosis [Fatal]
  - Escherichia sepsis [Fatal]
  - Circulatory collapse [Fatal]
  - Oliguria [Fatal]
  - Lactic acidosis [Fatal]
  - Anaemia [Fatal]
  - Renal failure [Fatal]
  - Thrombocytopenia [Recovering/Resolving]

NARRATIVE: CASE EVENT DATE: 2021
